FAERS Safety Report 20677101 (Version 3)
Quarter: 2022Q2

REPORT INFORMATION
  Report Type: Spontaneous
  Country: GB (occurrence: GB)
  Receive Date: 20220406
  Receipt Date: 20220616
  Transmission Date: 20220720
  Serious: Yes (Other)
  Sender: FDA-Public Use
  Company Number: GB-CELLTRION INC.-2022GB003666

PATIENT

DRUGS (1)
  1. INFLIXIMAB [Suspect]
     Active Substance: INFLIXIMAB
     Indication: Crohn^s disease
     Dosage: 120 MILLIGRAM, 2 WEEKLY
     Route: 058

REACTIONS (6)
  - Abdominal abscess [Not Recovered/Not Resolved]
  - Dyschezia [Unknown]
  - Pyrexia [Unknown]
  - Abdominal pain upper [Unknown]
  - Intentional dose omission [Unknown]
  - Product temperature excursion issue [Unknown]
